FAERS Safety Report 10657925 (Version 1)
Quarter: 2014Q4

REPORT INFORMATION
  Report Type: Spontaneous
  Country: IT (occurrence: IT)
  Receive Date: 20141217
  Receipt Date: 20141217
  Transmission Date: 20150529
  Serious: Yes (Hospitalization)
  Sender: FDA-Public Use
  Company Number: PHHY2014IT163775

PATIENT
  Age: 51 Year
  Sex: Female

DRUGS (9)
  1. LAMICTAL [Suspect]
     Active Substance: LAMOTRIGINE
     Indication: SUICIDE ATTEMPT
     Dosage: 56 DF (50MG)
     Route: 048
     Dates: start: 20141126, end: 20141126
  2. LARGACTIL [Suspect]
     Active Substance: CHLORPROMAZINE
     Indication: SUICIDE ATTEMPT
     Dosage: 29 DF (25MG)
     Route: 048
     Dates: start: 20141126, end: 20141126
  3. ANAFRANIL [Suspect]
     Active Substance: CLOMIPRAMINE HYDROCHLORIDE
     Indication: SUICIDE ATTEMPT
     Dosage: 10 DF (25MG)
     Route: 048
     Dates: start: 20141126, end: 20141126
  4. ABILIFY [Suspect]
     Active Substance: ARIPIPRAZOLE
     Indication: SUICIDE ATTEMPT
     Dosage: 60 DF, UNK
     Route: 048
     Dates: start: 20141126, end: 20141126
  5. PAROXETINE [Suspect]
     Active Substance: PAROXETINE\PAROXETINE HYDROCHLORIDE
     Indication: SUICIDE ATTEMPT
     Dosage: 140 MG, QD
     Route: 048
     Dates: start: 20141126, end: 20141126
  6. VALDOXAN [Suspect]
     Active Substance: AGOMELATINE
     Indication: SUICIDE ATTEMPT
     Dosage: 14 DF, UNK(25 NG)
     Route: 048
     Dates: start: 20141126, end: 20141126
  7. TAVOR [Suspect]
     Active Substance: LORAZEPAM
     Indication: SUICIDE ATTEMPT
     Dosage: 14 DF, UNK
     Route: 048
     Dates: start: 20141126, end: 20141126
  8. DEPAKIN [Suspect]
     Active Substance: VALPROATE SODIUM
     Indication: SUICIDE ATTEMPT
     Dosage: 20 DF (500MG)
     Route: 048
     Dates: start: 20141126, end: 20141126
  9. LIMBITRYL [Suspect]
     Active Substance: AMITRIPTYLINE HYDROCHLORIDE\CHLORDIAZEPOXIDE HYDROCHLORIDE
     Indication: SUICIDE ATTEMPT
     Dosage: 10 DF (AMIT 12.5MG, CHLO 5MG)
     Route: 048
     Dates: start: 20141126, end: 20141126

REACTIONS (5)
  - Alcohol abuse [Unknown]
  - Sopor [Unknown]
  - Intentional overdose [Unknown]
  - Drug abuse [Unknown]
  - Suicide attempt [Unknown]

NARRATIVE: CASE EVENT DATE: 20141126
